FAERS Safety Report 6925085-X (Version None)
Quarter: 2010Q3

REPORT INFORMATION
  Report Type: 
  Country: None (occurrence: None)
  Receive Date: 20100810
  Receipt Date: 20100809
  Transmission Date: 20110219
  Serious: Yes (Hospitalization)
  Sender: FDA-Public Use
  Company Number: SP02922

PATIENT
  Age: 70 Year
  Sex: Female
  Weight: 63.05 kg

DRUGS (11)
  1. MOVIPREP [Suspect]
     Indication: BOWEL PREPARATION
     Dosage: 1 LIT, ORAL
     Dates: start: 20100425, end: 20100425
  2. LIBRAX [Concomitant]
  3. CLONAZEPAM [Concomitant]
  4. NORTRIPTYLINE HCL [Concomitant]
  5. TENORMIN [Concomitant]
  6. MICARDIS [Concomitant]
  7. SYNTHROID [Concomitant]
  8. NITROFURANTOIN [Concomitant]
  9. PEPCID [Concomitant]
  10. ASPIRIN [Concomitant]
  11. ASCORBIC ACID [Concomitant]

REACTIONS (9)
  - AGGRESSION [None]
  - AMNESIA [None]
  - CONFUSIONAL STATE [None]
  - CONVULSION [None]
  - DEHYDRATION [None]
  - FREQUENT BOWEL MOVEMENTS [None]
  - HYPONATRAEMIA [None]
  - LOSS OF CONSCIOUSNESS [None]
  - VOMITING [None]
